FAERS Safety Report 4591449-5 (Version None)
Quarter: 2005Q1

REPORT INFORMATION
  Report Type: 
  Country: None (occurrence: None)
  Receive Date: 20050223
  Receipt Date: 20050223
  Transmission Date: 20050727
  Serious: Yes (Hospitalization)
  Sender: FDA-Public Use
  Company Number: None

PATIENT
  Age: 86 Year
  Sex: Male
  Weight: 77 kg

DRUGS (1)
  1. ERTAPENEM     UNK      UNK [Suspect]
     Indication: ABSCESS INTESTINAL
     Dosage: 1 GRAM   2 TIMES A DAY   INTRAVENOU
     Route: 042
     Dates: start: 20050131, end: 20050209

REACTIONS (5)
  - ABNORMAL BEHAVIOUR [None]
  - AMNESIA [None]
  - ASTHENIA [None]
  - DIFFICULTY IN WALKING [None]
  - DYSARTHRIA [None]
